FAERS Safety Report 5900166-8 (Version None)
Quarter: 2008Q3

REPORT INFORMATION
  Report Type: 
  Country: None (occurrence: None)
  Receive Date: 20080926
  Receipt Date: 20080917
  Transmission Date: 20090109
  Serious: Yes (Congenital Anomaly)
  Sender: FDA-Public Use
  Company Number: FR-SANOFI-SYNTHELABO-A02200802770

PATIENT

DRUGS (6)
  1. ETHAMBUTOL HCL [Suspect]
     Indication: TUBERCULOSIS
     Route: 064
     Dates: end: 20080601
  2. DICLOFENAC [Suspect]
     Indication: SYSTEMIC LUPUS ERYTHEMATOSUS
     Route: 064
     Dates: end: 20080616
  3. CORTANCYL [Suspect]
     Indication: SYSTEMIC LUPUS ERYTHEMATOSUS
     Route: 064
  4. RIFADIN [Suspect]
     Indication: TUBERCULOSIS
     Route: 064
     Dates: end: 20080601
  5. PLAQUENIL [Suspect]
     Indication: SYSTEMIC LUPUS ERYTHEMATOSUS
     Route: 064
  6. RIFINAH [Concomitant]
     Indication: TUBERCULOSIS
     Dosage: UNK
     Route: 048
     Dates: start: 20080601

REACTIONS (4)
  - DRUG EXPOSURE DURING PREGNANCY [None]
  - MATERNAL DRUGS AFFECTING FOETUS [None]
  - MICROGNATHIA [None]
  - VENTRICULAR SEPTAL DEFECT [None]
